FAERS Safety Report 8908766 (Version 1)
Quarter: 2012Q4

REPORT INFORMATION
  Report Type: 
  Country: US (occurrence: US)
  Receive Date: 20121114
  Receipt Date: 20121114
  Transmission Date: 20130627
  Serious: Yes (Other)
  Sender: FDA-Public Use
  Company Number: PHHY2012US104738

PATIENT
  Age: 81 Year
  Sex: Female

DRUGS (7)
  1. ACETYLSALICYLIC ACID [Suspect]
     Indication: HEADACHE
     Dosage: 1 DF, Daily
     Route: 048
  2. EXCEDRIN [Concomitant]
  3. AGGRENOX [Concomitant]
  4. ATENOLOL [Concomitant]
  5. LISINOPRIL [Concomitant]
  6. LOVASTATIN [Concomitant]
  7. TENSION HEADACHE RELIEVERS [Concomitant]

REACTIONS (3)
  - Transient ischaemic attack [Unknown]
  - Dysarthria [Unknown]
  - Incorrect drug administration duration [Unknown]
